FAERS Safety Report 10227262 (Version 1)
Quarter: 2014Q2

REPORT INFORMATION
  Report Type: Spontaneous
  Country: US (occurrence: None)
  Receive Date: 20140609
  Receipt Date: 20140609
  Transmission Date: 20141212
  Serious: No
  Sender: FDA-Public Use
  Company Number: None

PATIENT
  Age: 68 Year
  Sex: Male

DRUGS (1)
  1. EXJADE [Suspect]
     Indication: BLOOD IRON INCREASED
     Dosage: 1 TABLET EVERY MORNING BY MOUTH
     Route: 048
     Dates: start: 20140605, end: 20140605

REACTIONS (4)
  - Dyspnoea [None]
  - Dizziness [None]
  - Abdominal pain upper [None]
  - Vision blurred [None]
